FAERS Safety Report 23057077 (Version 2)
Quarter: 2024Q4

REPORT INFORMATION
  Report Type: Spontaneous
  Country: DE (occurrence: DE)
  Receive Date: 20231012
  Receipt Date: 20241115
  Transmission Date: 20250115
  Serious: Yes (Hospitalization)
  Sender: ALKEM
  Company Number: None

PATIENT
  Age: 66 Year
  Sex: Female
  Weight: 68 kg

DRUGS (10)
  1. CEFUROXIME AXETIL [Suspect]
     Active Substance: CEFUROXIME AXETIL
     Indication: Cystitis noninfective
     Dosage: UNK
     Route: 065
  2. CIPROFLOXACIN [Suspect]
     Active Substance: CIPROFLOXACIN
     Indication: Bronchitis
     Dosage: 1000 MILLIGRAM, QD (EVERY ONE DAY)
     Route: 048
  3. CIPROFLOXACIN [Suspect]
     Active Substance: CIPROFLOXACIN
     Dosage: 1000 MILLIGRAM, QD (EVERY ONE DAY)
     Route: 048
  4. LEVOFLOXACIN [Suspect]
     Active Substance: LEVOFLOXACIN
     Indication: Bronchitis
     Dosage: 500 MILLIGRAM, QD
     Route: 048
  5. CIPRO [Suspect]
     Active Substance: CIPROFLOXACIN HYDROCHLORIDE
     Indication: Bronchitis
     Dosage: 2 DOSAGE FORM
     Route: 065
  6. CIPROFLOXACIN HYDROCHLORIDE [Suspect]
     Active Substance: CIPROFLOXACIN HYDROCHLORIDE
     Indication: Product used for unknown indication
     Dosage: 2 DOSAGE FORM
     Route: 065
  7. COTRIM [Suspect]
     Active Substance: SULFAMETHOXAZOLE\TRIMETHOPRIM
     Indication: Cystitis noninfective
     Dosage: UNK
     Route: 065
  8. OFLOXACIN [Suspect]
     Active Substance: OFLOXACIN
     Indication: Cystitis noninfective
     Dosage: 2 DOSAGE FORM
     Route: 065
  9. OFLOXACIN [Suspect]
     Active Substance: OFLOXACIN
     Dosage: UNK
     Route: 065
  10. OFLOXACIN [Suspect]
     Active Substance: OFLOXACIN
     Dosage: UNK
     Route: 065

REACTIONS (18)
  - Muscular weakness [Unknown]
  - Fibromyalgia [Unknown]
  - Arthralgia [Unknown]
  - Arthralgia [Unknown]
  - Arthralgia [Unknown]
  - Pain in extremity [Unknown]
  - Pain in extremity [Unknown]
  - Pain in extremity [Unknown]
  - Back pain [Unknown]
  - Formication [Unknown]
  - General physical health deterioration [Unknown]
  - Musculoskeletal pain [Unknown]
  - Tendon disorder [Unknown]
  - Tendon disorder [Unknown]
  - Tendon rupture [Unknown]
  - Anxiety [Unknown]
  - Illusion [Unknown]
  - Presyncope [Unknown]

NARRATIVE: CASE EVENT DATE: 20190101
